FAERS Safety Report 16093702 (Version 1)
Quarter: 2019Q1

REPORT INFORMATION
  Report Type: Spontaneous
  Country: US (occurrence: US)
  Receive Date: 20190320
  Receipt Date: 20190320
  Transmission Date: 20190418
  Serious: No
  Sender: FDA-Public Use
  Company Number: US-AUROBINDO-AUR-APL-2018-032467

PATIENT
  Sex: Male

DRUGS (1)
  1. LAMOTRIGINE TABLETS 150 MG [Suspect]
     Active Substance: LAMOTRIGINE
     Indication: AFFECTIVE DISORDER
     Dosage: 1 DOSAGE FORM, TWO TIMES A DAY
     Route: 048

REACTIONS (6)
  - Product quality issue [Unknown]
  - Product solubility abnormal [Unknown]
  - Feeling abnormal [Unknown]
  - Drug ineffective [Unknown]
  - Psychomotor hyperactivity [Unknown]
  - Energy increased [Unknown]
